FAERS Safety Report 8000796 (Version 3)
Quarter: 2012Q4

REPORT INFORMATION
  Report Type: 
  Country: US (occurrence: US)
  Receive Date: 20110621
  Receipt Date: 20121112
  Transmission Date: 20130627
  Serious: No
  Sender: FDA-Public Use
  Company Number: US-ASTRAZENECA-2010SE55881

PATIENT
  Age: 79 Year
  Sex: Female

DRUGS (2)
  1. PULMICORT RESPULES [Suspect]
     Route: 055
  2. CRESTOR [Suspect]
     Route: 048

REACTIONS (8)
  - Malaise [Unknown]
  - Vascular rupture [Unknown]
  - Blood cholesterol increased [Unknown]
  - Arthritis [Unknown]
  - Asthma [Unknown]
  - Mobility decreased [Unknown]
  - Memory impairment [Unknown]
  - Drug dose omission [Unknown]
